FAERS Safety Report 5549271-9 (Version None)
Quarter: 2007Q4

REPORT INFORMATION
  Report Type: 
  Country: None (occurrence: None)
  Receive Date: 20071211
  Receipt Date: 20071019
  Transmission Date: 20080405
  Serious: Yes (Hospitalization)
  Sender: FDA-Public Use
  Company Number: IN-ELI_LILLY_AND_COMPANY-IN200710004765

PATIENT
  Age: 71 Year
  Sex: Female

DRUGS (18)
  1. HUMULIN R [Suspect]
     Indication: TYPE 2 DIABETES MELLITUS
     Dosage: 30 UNITS , THRICE DAILY
     Route: 042
     Dates: start: 20070930
  2. HUMULIN R [Suspect]
     Dosage: 10 U, UNK
     Route: 058
     Dates: start: 20070930
  3. HUMULIN R [Suspect]
     Dosage: 8 U, EACH EVENING
     Route: 058
     Dates: start: 20070930
  4. HUMULIN R [Suspect]
     Dosage: 12 U, FASTING
     Route: 058
     Dates: start: 20071001
  5. HUMULIN R [Suspect]
     Dosage: 10 U, PRE LUNCH
     Route: 058
     Dates: start: 20071001
  6. HUMULIN R [Suspect]
     Dosage: 12 U, PRE DINNER
     Route: 058
     Dates: start: 20071001
  7. HUMULIN R [Suspect]
     Dosage: 16 U, FASTING
     Route: 058
     Dates: start: 20071002
  8. HUMULIN R [Suspect]
     Dosage: 16 U, PRE LUNCH
     Route: 058
     Dates: start: 20071002
  9. HUMULIN R [Suspect]
     Dosage: 16 U, PRE DINNER
     Route: 058
     Dates: start: 20071002
  10. HUMULIN R [Suspect]
     Dosage: 20 U, FASTING
     Route: 058
     Dates: start: 20071003
  11. HUMULIN R [Suspect]
     Dosage: 20 U, PRE LUNCH
     Route: 058
     Dates: start: 20071003
  12. HUMULIN R [Suspect]
     Dosage: 20 U, PRE DINNER
     Route: 058
     Dates: start: 20071003
  13. HUMULIN R [Suspect]
     Dosage: 30 U, FASTING
     Route: 058
     Dates: start: 20071004
  14. HUMULIN R [Suspect]
     Dosage: 30 U, PRE LUNCH
     Route: 058
     Dates: start: 20071004
  15. HUMULIN R [Suspect]
     Dosage: 30 U, PRE DINNER
     Route: 058
     Dates: start: 20071004
  16. HUMULIN R [Suspect]
     Dosage: 30 U, FASTING
     Route: 058
     Dates: start: 20071005, end: 20071001
  17. HUMULIN 70/30 [Suspect]
     Indication: DIABETES MELLITUS
     Dosage: 30 U, 3/D
     Route: 058
     Dates: end: 20070901
  18. AUGMENTIN                               /SCH/ [Concomitant]
     Dosage: UNK, UNKNOWN
     Route: 042
     Dates: start: 20070901, end: 20071001

REACTIONS (5)
  - CELLULITIS [None]
  - DIABETES MELLITUS INADEQUATE CONTROL [None]
  - DRUG INEFFECTIVE [None]
  - HYPERGLYCAEMIA [None]
  - PYREXIA [None]
